FAERS Safety Report 6144729-6 (Version None)
Quarter: 2009Q2

REPORT INFORMATION
  Report Type: 
  Country: None (occurrence: None)
  Receive Date: 20090406
  Receipt Date: 20090326
  Transmission Date: 20091009
  Serious: Yes (Hospitalization, Other)
  Sender: FDA-Public Use
  Company Number: FR-JNJFOC-20090307405

PATIENT
  Age: 49 Year
  Sex: Female

DRUGS (8)
  1. REMICADE [Suspect]
     Indication: ANKYLOSING SPONDYLITIS
     Route: 042
  2. NABUCOX [Suspect]
     Indication: ANKYLOSING SPONDYLITIS
     Route: 048
  3. NEXIUM [Suspect]
     Indication: PROPHYLAXIS
     Route: 048
  4. CRESTOR [Concomitant]
     Indication: HYPERCHOLESTEROLAEMIA
     Route: 048
  5. MALARONE [Concomitant]
     Indication: MALARIA PROPHYLAXIS
     Route: 048
  6. RIVOTRIL [Concomitant]
  7. SKENAN [Concomitant]
  8. XYZAL [Concomitant]
     Indication: PRURITUS GENERALISED

REACTIONS (3)
  - ECZEMA [None]
  - PRURIGO [None]
  - PRURITUS GENERALISED [None]
